FAERS Safety Report 5542802-4 (Version None)
Quarter: 2007Q4

REPORT INFORMATION
  Report Type: 
  Country: None (occurrence: None)
  Receive Date: 20071210
  Receipt Date: 20071128
  Transmission Date: 20080405
  Serious: Yes (Hospitalization, Other)
  Sender: FDA-Public Use
  Company Number: CA-ELI_LILLY_AND_COMPANY-CA200711006998

PATIENT
  Sex: Female

DRUGS (9)
  1. FORTEO [Suspect]
     Indication: OSTEOPOROSIS
     Dosage: 20 UG, DAILY (1/D)
     Route: 058
     Dates: start: 20071011, end: 20071125
  2. FORTEO [Suspect]
     Dosage: 20 UG, DAILY (1/D)
     Route: 058
     Dates: start: 20071126
  3. METOPROLOL [Concomitant]
     Dosage: 50 MG, UNK
  4. RAMIPRIL [Concomitant]
     Dosage: 5 MG, UNK
  5. HYDROCHLOROTHIAZIDE [Concomitant]
     Dosage: 12.5 MG, 3/W
  6. GEN-FENOFIBRATE MICRO [Concomitant]
     Dosage: 200 MG, UNK
  7. MINITRAN [Concomitant]
     Route: 062
  8. FLOVENT [Concomitant]
     Route: 055
  9. ALBUTEROL [Concomitant]
     Route: 055

REACTIONS (3)
  - BLOOD PRESSURE SYSTOLIC INCREASED [None]
  - DIZZINESS [None]
  - FEELING ABNORMAL [None]
